FAERS Safety Report 17201854 (Version 1)
Quarter: 2019Q4

REPORT INFORMATION
  Report Type: Spontaneous
  Country: US (occurrence: US)
  Receive Date: 20191226
  Receipt Date: 20191226
  Transmission Date: 20200122
  Serious: No
  Sender: FDA-Public Use
  Company Number: US-BAUSCH-BL-2019-065007

PATIENT
  Age: 86 Year
  Sex: Male

DRUGS (2)
  1. ATIVAN [Suspect]
     Active Substance: LORAZEPAM
     Indication: PRODUCT USE IN UNAPPROVED INDICATION
  2. ATIVAN [Suspect]
     Active Substance: LORAZEPAM
     Indication: SCAN BRAIN
     Route: 065
     Dates: start: 201910

REACTIONS (2)
  - Product use in unapproved indication [Unknown]
  - Adverse drug reaction [Unknown]

NARRATIVE: CASE EVENT DATE: 201910
